FAERS Safety Report 7499321-8 (Version None)
Quarter: 2011Q2

REPORT INFORMATION
  Report Type: 
  Country: None (occurrence: None)
  Receive Date: 20110524
  Receipt Date: 20110504
  Transmission Date: 20111010
  Serious: No
  Sender: FDA-Public Use
  Company Number: US-B.I. PHARMACEUTICALS,INC./RIDGEFIELD-2011-BP-07972BP

PATIENT
  Sex: Male

DRUGS (14)
  1. NIASPAN [Concomitant]
     Dosage: 3000 MG
  2. CARVEDILOL [Concomitant]
     Indication: CARDIAC DISORDER
     Dosage: 50 MG
     Route: 048
  3. KLOR-CON [Concomitant]
     Indication: ELECTROLYTE SUBSTITUTION THERAPY
     Dosage: 40 MEQ
     Route: 048
  4. DEMADEX [Concomitant]
     Indication: FLUID RETENTION
     Dosage: 20 MG
     Route: 048
  5. NIASPAN [Concomitant]
     Indication: BLOOD CHOLESTEROL INCREASED
     Dosage: 1500 MG
     Route: 048
  6. PRADAXA [Suspect]
     Indication: CEREBROVASCULAR ACCIDENT PROPHYLAXIS
     Dosage: 300 MG
     Route: 048
     Dates: start: 20110221, end: 20110326
  7. LISINOPRIL [Concomitant]
     Indication: HYPERTENSION
     Dosage: 20 MG
     Route: 048
  8. CRESTOR [Concomitant]
     Indication: BLOOD CHOLESTEROL INCREASED
     Dosage: 10 MG
     Route: 048
  9. PRADAXA [Suspect]
     Indication: ATRIAL FIBRILLATION
  10. LOVAZA [Concomitant]
     Dosage: 3 G
  11. ASCORBIC ACID [Concomitant]
     Dosage: 500 MG
  12. LEVOTHYROXINE SODIUM [Concomitant]
     Indication: HYPOTHYROIDISM
     Dosage: 50 MG
     Route: 048
  13. LORAGA [Concomitant]
     Indication: BLOOD CHOLESTEROL INCREASED
     Dosage: 4 G
     Route: 048
  14. VITAMIN D [Concomitant]
     Dosage: 1000 MG

REACTIONS (7)
  - ABDOMINAL DISCOMFORT [None]
  - THROAT IRRITATION [None]
  - HAEMORRHOIDS [None]
  - GASTROOESOPHAGEAL REFLUX DISEASE [None]
  - NASAL DISCOMFORT [None]
  - PRURITUS [None]
  - DYSPEPSIA [None]
